FAERS Safety Report 7630723-2 (Version None)
Quarter: 2011Q3

REPORT INFORMATION
  Report Type: 
  Country: None (occurrence: None)
  Receive Date: 20110722
  Receipt Date: 20110720
  Transmission Date: 20111222
  Serious: Yes (Disabling)
  Sender: FDA-Public Use
  Company Number: GB-MERCK-1107GBR00083

PATIENT
  Age: 68 Year
  Sex: Male
  Weight: 131 kg

DRUGS (6)
  1. FOSAMAX [Suspect]
     Indication: OSTEOPOROSIS PROPHYLAXIS
     Route: 048
     Dates: start: 20080331, end: 20110222
  2. ACETAMINOPHEN AND CODEINE PHOSPHATE [Concomitant]
     Route: 048
     Dates: start: 20040729
  3. CHLORPHENIRAMINE [Concomitant]
     Route: 065
     Dates: start: 20040126
  4. NAPROXEN [Concomitant]
     Indication: NECK PAIN
     Route: 048
     Dates: start: 20041004
  5. PREDNISOLONE [Concomitant]
     Route: 048
     Dates: start: 20080311
  6. ZOPICLONE [Concomitant]
     Route: 065
     Dates: start: 20000531

REACTIONS (3)
  - EXTRASYSTOLES [None]
  - ASTHENIA [None]
  - MYALGIA [None]
